FAERS Safety Report 22591874 (Version 1)
Quarter: 2023Q2

REPORT INFORMATION
  Report Type: Spontaneous
  Country: US (occurrence: US)
  Receive Date: 20230612
  Receipt Date: 20230612
  Transmission Date: 20230721
  Serious: Yes (Death, Hospitalization)
  Sender: FDA-Public Use
  Company Number: US-PRINSTON PHARMACEUTICAL INC.-2023PRN00277

PATIENT
  Age: 50 Year
  Sex: Female

DRUGS (1)
  1. HYDROXYZINE HYDROCHLORIDE [Suspect]
     Active Substance: HYDROXYZINE HYDROCHLORIDE
     Dosage: 36-40 TABLETS
     Route: 048
     Dates: start: 2011

REACTIONS (6)
  - Overdose [Fatal]
  - Depressed level of consciousness [Not Recovered/Not Resolved]
  - Bradycardia [Not Recovered/Not Resolved]
  - Metabolic acidosis [Unknown]
  - Hypotension [Unknown]
  - Renal failure [Unknown]

NARRATIVE: CASE EVENT DATE: 20110101
